FAERS Safety Report 26136834 (Version 1)
Quarter: 2025Q4

REPORT INFORMATION
  Report Type: Spontaneous
  Country: US (occurrence: None)
  Receive Date: 20251209
  Receipt Date: 20251209
  Transmission Date: 20260119
  Serious: Yes (Hospitalization)
  Sender: FDA-CTU
  Company Number: None

PATIENT
  Age: 71 Year
  Sex: Male
  Weight: 74 kg

DRUGS (1)
  1. HYDRALAZINE HCL [Suspect]
     Active Substance: HYDRALAZINE HYDROCHLORIDE
     Indication: Hypertension
     Dosage: 75 MG TID PO
     Route: 048
     Dates: start: 20211015, end: 20250812

REACTIONS (3)
  - Pericardial effusion [None]
  - Lupus-like syndrome [None]
  - Inadequate haemodialysis [None]

NARRATIVE: CASE EVENT DATE: 20250807
